FAERS Safety Report 19434544 (Version 1)
Quarter: 2021Q2

REPORT INFORMATION
  Report Type: Spontaneous
  Country: US (occurrence: US)
  Receive Date: 20210617
  Receipt Date: 20210617
  Transmission Date: 20210717
  Serious: No
  Sender: FDA-Public Use
  Company Number: US-ROCHE-2657791

PATIENT
  Age: 65 Year
  Sex: Female
  Weight: 54.48 kg

DRUGS (7)
  1. PLAQUENIL [Concomitant]
     Active Substance: HYDROXYCHLOROQUINE SULFATE
     Indication: RHEUMATOID ARTHRITIS
     Dosage: TAKING FOR YEARS
     Route: 048
  2. ERYTHROMYCIN. [Concomitant]
     Active Substance: ERYTHROMYCIN
     Indication: PNEUMONIA BACTERIAL
     Dosage: TAKES MONDAY, WEDNESDAY + FRIDAY
     Route: 048
     Dates: start: 202002
  3. ACTEMRA [Suspect]
     Active Substance: TOCILIZUMAB
     Indication: RHEUMATOID ARTHRITIS
     Route: 058
     Dates: start: 20200702
  4. RIFAMPIN. [Concomitant]
     Active Substance: RIFAMPIN
     Dosage: TAKES MONDAY, WEDNESDAY + FRIDAY
     Route: 048
     Dates: start: 202002
  5. ETHAMBUTOL [Concomitant]
     Active Substance: ETHAMBUTOL HYDROCHLORIDE
     Dosage: TAKES MONDAY, WEDNESDAY + FRIDAY
     Route: 048
     Dates: start: 202002
  6. DEXILANT [Concomitant]
     Active Substance: DEXLANSOPRAZOLE
     Indication: GASTROOESOPHAGEAL REFLUX DISEASE
     Dosage: TAKING FOR YEARS
     Route: 048
  7. ACTEMRA [Suspect]
     Active Substance: TOCILIZUMAB

REACTIONS (4)
  - Accidental exposure to product [Unknown]
  - Wrong technique in product usage process [Unknown]
  - Product administration error [Unknown]
  - No adverse event [Unknown]

NARRATIVE: CASE EVENT DATE: 20200806
